FAERS Safety Report 12179330 (Version 20)
Quarter: 2017Q2

REPORT INFORMATION
  Report Type: Spontaneous
  Country: US (occurrence: US)
  Receive Date: 20160314
  Receipt Date: 20170531
  Transmission Date: 20170830
  Serious: Yes (Life-Threatening, Hospitalization, Other)
  Sender: FDA-Public Use
  Company Number: US-BAUSCH-BL-2016-006225

PATIENT
  Age: 39 Year
  Sex: Female

DRUGS (102)
  1. RUCONEST [Suspect]
     Active Substance: HUMAN C1-ESTERASE INHIBITOR
     Route: 042
     Dates: start: 20160703, end: 20160703
  2. RUCONEST [Suspect]
     Active Substance: HUMAN C1-ESTERASE INHIBITOR
     Dosage: SCHEDULED DOSE
     Route: 042
     Dates: start: 20160731, end: 20160731
  3. RUCONEST [Suspect]
     Active Substance: HUMAN C1-ESTERASE INHIBITOR
     Dosage: SCHEDULED DOSE
     Route: 042
     Dates: start: 20160905, end: 20160905
  4. RUCONEST [Suspect]
     Active Substance: HUMAN C1-ESTERASE INHIBITOR
     Route: 042
     Dates: start: 20161218
  5. FIRAZYR [Suspect]
     Active Substance: ICATIBANT ACETATE
     Route: 065
     Dates: start: 20160902, end: 20160902
  6. FIRAZYR [Suspect]
     Active Substance: ICATIBANT ACETATE
     Route: 065
     Dates: start: 20160924, end: 20160924
  7. FIRAZYR [Suspect]
     Active Substance: ICATIBANT ACETATE
     Route: 065
     Dates: start: 20170309
  8. FIRAZYR [Suspect]
     Active Substance: ICATIBANT ACETATE
     Route: 065
     Dates: start: 20170407
  9. HEPARIN [Concomitant]
     Active Substance: HEPARIN SODIUM
     Indication: PRODUCT USED FOR UNKNOWN INDICATION
  10. SINGULAIR [Concomitant]
     Active Substance: MONTELUKAST SODIUM
     Indication: HYPERSENSITIVITY
  11. DIAZEPAM. [Concomitant]
     Active Substance: DIAZEPAM
     Indication: ANXIETY
  12. RUCONEST [Suspect]
     Active Substance: HUMAN C1-ESTERASE INHIBITOR
     Route: 042
     Dates: start: 20151110
  13. RUCONEST [Suspect]
     Active Substance: HUMAN C1-ESTERASE INHIBITOR
     Route: 042
     Dates: start: 20160702, end: 20160702
  14. RUCONEST [Suspect]
     Active Substance: HUMAN C1-ESTERASE INHIBITOR
     Route: 042
     Dates: start: 20160720, end: 20160720
  15. RUCONEST [Suspect]
     Active Substance: HUMAN C1-ESTERASE INHIBITOR
     Route: 042
     Dates: start: 20161224
  16. FIRAZYR [Suspect]
     Active Substance: ICATIBANT ACETATE
     Route: 065
     Dates: start: 20160729, end: 20160729
  17. FIRAZYR [Suspect]
     Active Substance: ICATIBANT ACETATE
     Route: 065
     Dates: start: 20160906, end: 20160906
  18. FIRAZYR [Suspect]
     Active Substance: ICATIBANT ACETATE
     Route: 065
     Dates: start: 20161217
  19. FIRAZYR [Suspect]
     Active Substance: ICATIBANT ACETATE
     Route: 065
     Dates: start: 20161223
  20. FIRAZYR [Suspect]
     Active Substance: ICATIBANT ACETATE
     Route: 065
     Dates: start: 20170405
  21. LOVENOX [Concomitant]
     Active Substance: ENOXAPARIN SODIUM
     Indication: PULMONARY THROMBOSIS
  22. FLUNISOLIDE NASAL SPRAY [Concomitant]
     Indication: HYPERSENSITIVITY
  23. COMPAZINE [Concomitant]
     Active Substance: PROCHLORPERAZINE MALEATE
     Indication: NAUSEA
  24. REMERON [Concomitant]
     Active Substance: MIRTAZAPINE
     Indication: SLEEP DISORDER
  25. RUCONEST [Suspect]
     Active Substance: HUMAN C1-ESTERASE INHIBITOR
     Route: 042
     Dates: start: 201606, end: 201606
  26. RUCONEST [Suspect]
     Active Substance: HUMAN C1-ESTERASE INHIBITOR
     Route: 042
     Dates: start: 20160719
  27. RUCONEST [Suspect]
     Active Substance: HUMAN C1-ESTERASE INHIBITOR
     Dosage: SCHEDULED DOSE
     Route: 042
     Dates: start: 20160729, end: 20160729
  28. RUCONEST [Suspect]
     Active Substance: HUMAN C1-ESTERASE INHIBITOR
     Route: 042
     Dates: start: 20161206
  29. RUCONEST [Suspect]
     Active Substance: HUMAN C1-ESTERASE INHIBITOR
     Route: 042
     Dates: start: 20161230
  30. RUCONEST [Suspect]
     Active Substance: HUMAN C1-ESTERASE INHIBITOR
     Route: 042
     Dates: start: 20170101
  31. RUCONEST [Suspect]
     Active Substance: HUMAN C1-ESTERASE INHIBITOR
     Route: 042
     Dates: start: 201704
  32. FIRAZYR [Suspect]
     Active Substance: ICATIBANT ACETATE
     Route: 065
     Dates: start: 201606
  33. FIRAZYR [Suspect]
     Active Substance: ICATIBANT ACETATE
     Route: 065
     Dates: start: 20160702
  34. FIRAZYR [Suspect]
     Active Substance: ICATIBANT ACETATE
     Route: 065
     Dates: start: 20160718, end: 20160718
  35. FIRAZYR [Suspect]
     Active Substance: ICATIBANT ACETATE
     Route: 065
     Dates: start: 20161204
  36. FIRAZYR [Suspect]
     Active Substance: ICATIBANT ACETATE
     Route: 065
     Dates: start: 20170511
  37. AMBIEN [Concomitant]
     Active Substance: ZOLPIDEM TARTRATE
     Indication: SLEEP DISORDER
  38. IRON [Concomitant]
     Active Substance: IRON
     Indication: THALASSAEMIA
  39. RUCONEST [Suspect]
     Active Substance: HUMAN C1-ESTERASE INHIBITOR
     Indication: DEVICE OCCLUSION
     Dosage: AS NEEDED
     Route: 042
     Dates: start: 20150722, end: 20150722
  40. RUCONEST [Suspect]
     Active Substance: HUMAN C1-ESTERASE INHIBITOR
     Dosage: AS NEEDED
     Route: 042
     Dates: start: 201511, end: 201511
  41. RUCONEST [Suspect]
     Active Substance: HUMAN C1-ESTERASE INHIBITOR
     Dosage: UNSCHEDULED
     Route: 042
     Dates: start: 20160723, end: 20160723
  42. RUCONEST [Suspect]
     Active Substance: HUMAN C1-ESTERASE INHIBITOR
     Route: 042
     Dates: start: 20161204
  43. RUCONEST [Suspect]
     Active Substance: HUMAN C1-ESTERASE INHIBITOR
     Route: 042
     Dates: start: 20161210
  44. RUCONEST [Suspect]
     Active Substance: HUMAN C1-ESTERASE INHIBITOR
     Route: 042
     Dates: start: 20161216
  45. RUCONEST [Suspect]
     Active Substance: HUMAN C1-ESTERASE INHIBITOR
     Route: 042
     Dates: start: 20161222
  46. RUCONEST [Suspect]
     Active Substance: HUMAN C1-ESTERASE INHIBITOR
     Route: 042
     Dates: start: 20170103
  47. FIRAZYR [Suspect]
     Active Substance: ICATIBANT ACETATE
     Route: 065
     Dates: start: 20160716, end: 20160716
  48. FIRAZYR [Suspect]
     Active Substance: ICATIBANT ACETATE
     Route: 065
     Dates: start: 20160720, end: 20160720
  49. FIRAZYR [Suspect]
     Active Substance: ICATIBANT ACETATE
     Route: 065
     Dates: start: 20160731, end: 20160731
  50. FIRAZYR [Suspect]
     Active Substance: ICATIBANT ACETATE
     Route: 065
     Dates: start: 20160904, end: 20160904
  51. FIRAZYR [Suspect]
     Active Substance: ICATIBANT ACETATE
     Route: 065
     Dates: start: 20160926, end: 20160926
  52. FIRAZYR [Suspect]
     Active Substance: ICATIBANT ACETATE
     Route: 065
     Dates: start: 20161002, end: 20161002
  53. FIRAZYR [Suspect]
     Active Substance: ICATIBANT ACETATE
     Route: 065
     Dates: start: 201612
  54. FIRAZYR [Suspect]
     Active Substance: ICATIBANT ACETATE
     Route: 065
     Dates: start: 20161210
  55. FIRAZYR [Suspect]
     Active Substance: ICATIBANT ACETATE
     Route: 065
     Dates: start: 20170403
  56. FIRAZYR [Suspect]
     Active Substance: ICATIBANT ACETATE
     Route: 065
     Dates: start: 20170523
  57. ZYRTEC [Concomitant]
     Active Substance: CETIRIZINE HYDROCHLORIDE
     Indication: HYPERSENSITIVITY
  58. SPIRIVA [Concomitant]
     Active Substance: TIOTROPIUM BROMIDE MONOHYDRATE
     Indication: RESPIRATION ABNORMAL
  59. RUCONEST [Suspect]
     Active Substance: HUMAN C1-ESTERASE INHIBITOR
     Route: 042
     Dates: start: 201511
  60. RUCONEST [Suspect]
     Active Substance: HUMAN C1-ESTERASE INHIBITOR
     Route: 042
     Dates: start: 20160525, end: 20160525
  61. RUCONEST [Suspect]
     Active Substance: HUMAN C1-ESTERASE INHIBITOR
     Route: 042
     Dates: start: 20160701, end: 20160701
  62. RUCONEST [Suspect]
     Active Substance: HUMAN C1-ESTERASE INHIBITOR
     Route: 042
  63. RUCONEST [Suspect]
     Active Substance: HUMAN C1-ESTERASE INHIBITOR
     Route: 042
     Dates: start: 20160716, end: 20160716
  64. RUCONEST [Suspect]
     Active Substance: HUMAN C1-ESTERASE INHIBITOR
     Route: 042
     Dates: start: 20161220
  65. FIRAZYR [Suspect]
     Active Substance: ICATIBANT ACETATE
     Route: 065
     Dates: start: 20160724, end: 20160724
  66. FIRAZYR [Suspect]
     Active Substance: ICATIBANT ACETATE
     Route: 065
     Dates: start: 20160730, end: 20160730
  67. FIRAZYR [Suspect]
     Active Substance: ICATIBANT ACETATE
     Route: 065
     Dates: start: 20160908, end: 20160908
  68. FIRAZYR [Suspect]
     Active Substance: ICATIBANT ACETATE
     Route: 065
     Dates: start: 20160928, end: 20160928
  69. FIRAZYR [Suspect]
     Active Substance: ICATIBANT ACETATE
     Route: 065
     Dates: start: 20161212
  70. CLARITIN [Concomitant]
     Active Substance: LORATADINE
     Indication: HYPERSENSITIVITY
  71. RUCONEST [Suspect]
     Active Substance: HUMAN C1-ESTERASE INHIBITOR
     Route: 042
     Dates: start: 201510
  72. RUCONEST [Suspect]
     Active Substance: HUMAN C1-ESTERASE INHIBITOR
     Dosage: AS NEEDED
     Route: 042
     Dates: start: 201511, end: 201511
  73. RUCONEST [Suspect]
     Active Substance: HUMAN C1-ESTERASE INHIBITOR
     Route: 042
     Dates: start: 20160714, end: 20160714
  74. RUCONEST [Suspect]
     Active Substance: HUMAN C1-ESTERASE INHIBITOR
     Dosage: EVERY OTHER DAY
     Route: 042
     Dates: start: 20151021
  75. FIRAZYR [Suspect]
     Active Substance: ICATIBANT ACETATE
     Route: 065
     Dates: start: 20160701
  76. FIRAZYR [Suspect]
     Active Substance: ICATIBANT ACETATE
     Route: 065
     Dates: start: 20160715, end: 20160715
  77. FIRAZYR [Suspect]
     Active Substance: ICATIBANT ACETATE
     Route: 065
     Dates: start: 20160723, end: 20160723
  78. FIRAZYR [Suspect]
     Active Substance: ICATIBANT ACETATE
     Route: 065
     Dates: start: 20161205
  79. FIRAZYR [Suspect]
     Active Substance: ICATIBANT ACETATE
     Route: 065
     Dates: start: 20161206
  80. FIRAZYR [Suspect]
     Active Substance: ICATIBANT ACETATE
     Route: 065
     Dates: start: 20161215
  81. ALTEPLASE [Suspect]
     Active Substance: ALTEPLASE
     Indication: DEVICE OCCLUSION
     Route: 065
  82. COUMADIN [Suspect]
     Active Substance: WARFARIN SODIUM
     Indication: PRODUCT USED FOR UNKNOWN INDICATION
     Route: 065
  83. NORMAL SALINE [Concomitant]
     Active Substance: SODIUM CHLORIDE
     Indication: PRODUCT USED FOR UNKNOWN INDICATION
  84. DIAZEPAM. [Concomitant]
     Active Substance: DIAZEPAM
     Indication: HYPOTONIA
  85. RUCONEST [Suspect]
     Active Substance: HUMAN C1-ESTERASE INHIBITOR
     Indication: HEREDITARY ANGIOEDEMA
     Route: 042
     Dates: start: 20151009, end: 20151009
  86. RUCONEST [Suspect]
     Active Substance: HUMAN C1-ESTERASE INHIBITOR
     Route: 042
     Dates: start: 2016
  87. FIRAZYR [Suspect]
     Active Substance: ICATIBANT ACETATE
     Route: 065
     Dates: start: 20160726, end: 20160726
  88. FIRAZYR [Suspect]
     Active Substance: ICATIBANT ACETATE
     Route: 065
     Dates: start: 20160801, end: 20160801
  89. FIRAZYR [Suspect]
     Active Substance: ICATIBANT ACETATE
     Route: 065
     Dates: start: 20170408
  90. ADVAIR HFA [Concomitant]
     Active Substance: FLUTICASONE PROPIONATE\SALMETEROL XINAFOATE
     Indication: RESPIRATION ABNORMAL
  91. RUCONEST [Suspect]
     Active Substance: HUMAN C1-ESTERASE INHIBITOR
     Route: 042
     Dates: start: 20160718, end: 20160718
  92. RUCONEST [Suspect]
     Active Substance: HUMAN C1-ESTERASE INHIBITOR
     Route: 042
     Dates: start: 201611
  93. RUCONEST [Suspect]
     Active Substance: HUMAN C1-ESTERASE INHIBITOR
     Route: 042
     Dates: start: 20161202
  94. RUCONEST [Suspect]
     Active Substance: HUMAN C1-ESTERASE INHIBITOR
     Route: 042
     Dates: start: 20161228
  95. RUCONEST [Suspect]
     Active Substance: HUMAN C1-ESTERASE INHIBITOR
     Route: 042
     Dates: start: 20170309
  96. FIRAZYR [Suspect]
     Active Substance: ICATIBANT ACETATE
     Indication: HEREDITARY ANGIOEDEMA
     Dosage: AS NEEDED
     Route: 065
     Dates: start: 20160525
  97. FIRAZYR [Suspect]
     Active Substance: ICATIBANT ACETATE
     Route: 065
     Dates: start: 20160719, end: 20160719
  98. FIRAZYR [Suspect]
     Active Substance: ICATIBANT ACETATE
     Route: 065
     Dates: start: 20160905, end: 20160905
  99. FIRAZYR [Suspect]
     Active Substance: ICATIBANT ACETATE
     Route: 065
     Dates: start: 20161207
  100. FIRAZYR [Suspect]
     Active Substance: ICATIBANT ACETATE
     Route: 065
     Dates: start: 20170409
  101. FIRAZYR [Suspect]
     Active Substance: ICATIBANT ACETATE
     Route: 065
     Dates: start: 20170518
  102. FIRAZYR [Suspect]
     Active Substance: ICATIBANT ACETATE
     Route: 065
     Dates: start: 20170522

REACTIONS (23)
  - Hospitalisation [Unknown]
  - Skin burning sensation [Unknown]
  - Drug ineffective [Not Recovered/Not Resolved]
  - Jugular vein thrombosis [Unknown]
  - Dyspnoea [Recovering/Resolving]
  - Hypertension [Unknown]
  - Sinusitis [Unknown]
  - Unevaluable event [Unknown]
  - Headache [Unknown]
  - Pulmonary embolism [Unknown]
  - Pulmonary thrombosis [Unknown]
  - Concussion [Unknown]
  - Haematochezia [Recovering/Resolving]
  - Chest pain [Unknown]
  - Device occlusion [Unknown]
  - Head injury [Unknown]
  - Blood copper increased [Recovering/Resolving]
  - Discoloured vomit [Recovering/Resolving]
  - Pain in jaw [Unknown]
  - Barrett^s oesophagus [Recovering/Resolving]
  - Pain in extremity [Unknown]
  - Upper respiratory tract infection [Unknown]
  - Cardiac disorder [Unknown]

NARRATIVE: CASE EVENT DATE: 20160307
